FAERS Safety Report 17498776 (Version 5)
Quarter: 2020Q3

REPORT INFORMATION
  Report Type: Spontaneous
  Country: US (occurrence: US)
  Receive Date: 20200304
  Receipt Date: 20200824
  Transmission Date: 20201102
  Serious: Yes (Other)
  Sender: FDA-Public Use
  Company Number: US-BAYER-2020-036301

PATIENT
  Age: 48 Year

DRUGS (4)
  1. KOGENATE FS [Suspect]
     Active Substance: ANTIHEMOPHILIC FACTOR, HUMAN RECOMBINANT
     Dosage: 1 DF, ONCE, FOR TREAT BACK AFTER EXERCISING
  2. KOGENATE FS [Suspect]
     Active Substance: ANTIHEMOPHILIC FACTOR, HUMAN RECOMBINANT
     Dosage: 2 DF, ONCE, FOR TREATMENT RIGHT ANKLE BLEED
     Route: 042
     Dates: start: 20200608, end: 20200608
  3. KOGENATE FS [Suspect]
     Active Substance: ANTIHEMOPHILIC FACTOR, HUMAN RECOMBINANT
     Dosage: 3585 U
     Route: 042
  4. KOGENATE FS [Suspect]
     Active Substance: ANTIHEMOPHILIC FACTOR, HUMAN RECOMBINANT
     Dosage: UNK, FOR TREATMENT BLEED R AND L HAND
     Route: 042
     Dates: start: 20200609, end: 20200609

REACTIONS (6)
  - Spontaneous haemorrhage [Recovered/Resolved]
  - Spontaneous haemorrhage [None]
  - Spontaneous haemorrhage [Recovered/Resolved]
  - Fall [Recovered/Resolved]
  - Haemarthrosis [Recovered/Resolved]
  - Haemorrhage [None]

NARRATIVE: CASE EVENT DATE: 20200202
